FAERS Safety Report 6848426-0 (Version None)
Quarter: 2010Q3

REPORT INFORMATION
  Report Type: 
  Country: None (occurrence: None)
  Receive Date: 20100716
  Receipt Date: 20100713
  Transmission Date: 20110219
  Serious: Yes (Other)
  Sender: FDA-Public Use
  Company Number: GB-MERCK-1007GBR00061

PATIENT
  Age: 67 Year
  Sex: Female

DRUGS (2)
  1. FOSAMAX [Suspect]
     Indication: OSTEOPOROSIS
     Route: 048
  2. CALCIUM (UNSPECIFIED) AND VITAMIN D (UNSPECIFIED) [Concomitant]
     Indication: OSTEOPOROSIS
     Route: 065

REACTIONS (6)
  - BLISTER [None]
  - ECZEMA EYELIDS [None]
  - ERYTHEMA OF EYELID [None]
  - EYE IRRITATION [None]
  - EYE PRURITUS [None]
  - EYELID OEDEMA [None]
